FAERS Safety Report 5498134-6 (Version None)
Quarter: 2007Q4

REPORT INFORMATION
  Report Type: 
  Country: None (occurrence: None)
  Receive Date: 20071025
  Receipt Date: 20071025
  Transmission Date: 20080405
  Serious: Yes (Hospitalization)
  Sender: FDA-Public Use
  Company Number: US-BOEHRINGER INGELHEIM PHARMACEUTICALS, INC.-2006-BP-10344BP

PATIENT
  Sex: Male

DRUGS (75)
  1. MIRAPEX [Suspect]
     Indication: RESTLESS LEGS SYNDROME
     Route: 048
     Dates: start: 19980701, end: 20041201
  2. LIPITOR [Concomitant]
     Indication: RESTLESS LEGS SYNDROME
     Dates: start: 19970101, end: 20050527
  3. LIPITOR [Concomitant]
     Indication: HYPERLIPIDAEMIA
  4. BEXTRA [Concomitant]
     Indication: RESTLESS LEGS SYNDROME
     Dates: start: 20020901, end: 20040901
  5. BEXTRA [Concomitant]
     Indication: ARTHRALGIA
  6. BEXTRA [Concomitant]
     Indication: TENDONITIS
  7. CANNABIS [Concomitant]
  8. DIOVAN HCT [Concomitant]
     Indication: HYPERTENSION
     Dates: start: 20020901
  9. DIOVAN [Concomitant]
     Indication: HYPERTENSION
     Dates: start: 20040101, end: 20061124
  10. WELLBUTRIN [Concomitant]
  11. NEURONTIN [Concomitant]
     Indication: RESTLESS LEGS SYNDROME
     Dates: start: 20041201
  12. NEURONTIN [Concomitant]
     Indication: SLEEP DISORDER THERAPY
  13. ASPIRIN [Concomitant]
     Indication: CEREBROVASCULAR ACCIDENT
     Dates: start: 19980701
  14. DURAGESIC-100 [Concomitant]
     Indication: ARTHRALGIA
     Dates: start: 20060901
  15. TOPROL-XL [Concomitant]
     Dates: start: 20061124
  16. FENTANYL TRANSDERMAL SYSTEM [Concomitant]
     Dates: start: 20060327
  17. VITAMIN B [Concomitant]
  18. KELP [Concomitant]
  19. NAPROXEN [Concomitant]
  20. WELLBUTRIN XL [Concomitant]
     Indication: DEPRESSION
  21. WELLBUTRIN XL [Concomitant]
     Dates: start: 20040201, end: 20040901
  22. WELLBUTRIN XL [Concomitant]
     Route: 048
     Dates: start: 20041201
  23. GABAPENTIN [Concomitant]
  24. VITAMIN D [Concomitant]
  25. AMBIEN [Concomitant]
     Dates: end: 20050722
  26. VIAGRA [Concomitant]
  27. LEXAPRO [Concomitant]
     Dates: end: 20040801
  28. STRATTERA [Concomitant]
     Dates: start: 20040801
  29. KLONOPIN [Concomitant]
     Indication: INSOMNIA
     Dates: end: 20050722
  30. KLONOPIN [Concomitant]
     Indication: RESTLESS LEGS SYNDROME
     Dates: start: 19931201, end: 19940126
  31. KLONOPIN [Concomitant]
  32. REQUIP [Concomitant]
     Dates: start: 20041222, end: 20050701
  33. TRAZODONE HCL [Concomitant]
     Indication: RESTLESS LEGS SYNDROME
  34. SINEMET [Concomitant]
     Indication: RESTLESS LEGS SYNDROME
  35. UNSPECIFIED BLOOD PRESSURE MEDICATION [Concomitant]
     Indication: BLOOD PRESSURE
  36. UNSPECIFIED CHOLESTEROL LOWERING AGENT [Concomitant]
     Indication: BLOOD CHOLESTEROL INCREASED
  37. MOTRIN [Concomitant]
     Indication: ARTHRITIS
     Dates: start: 19970701
  38. MOTRIN [Concomitant]
     Indication: MUSCULOSKELETAL PAIN
     Dates: start: 20040801
  39. TRAMADOL HCL [Concomitant]
  40. ONE A DAY VITAMIN [Concomitant]
  41. FERROUS SULFATE TAB [Concomitant]
     Indication: RESTLESS LEGS SYNDROME
     Dates: end: 20060327
  42. ULTRAM [Concomitant]
     Indication: RESTLESS LEGS SYNDROME
  43. FLUOXETINE [Concomitant]
     Indication: MOOD ALTERED
     Dates: start: 20050621
  44. RESTORIL [Concomitant]
     Dates: start: 20050701
  45. SINEMET CR [Concomitant]
     Indication: RESTLESS LEGS SYNDROME
     Dosage: 100/400
     Dates: start: 20050722
  46. LUNESTA [Concomitant]
     Route: 048
     Dates: start: 20050718
  47. XANAX [Concomitant]
     Indication: TREMOR
     Route: 048
     Dates: start: 20051115
  48. XANAX [Concomitant]
     Indication: ANXIETY
  49. FLU SHOT [Concomitant]
     Dates: start: 20051122
  50. SONATA [Concomitant]
     Dates: end: 20060327
  51. CLONAZEPAM [Concomitant]
     Dates: end: 20061001
  52. VITAMIN B COMPLEX CAP [Concomitant]
     Dates: start: 20060925
  53. PNEUMOVAX 23 [Concomitant]
     Dates: start: 20060925
  54. TDAP [Concomitant]
     Dates: start: 20060925
  55. BL ONE 50 PLUS [Concomitant]
  56. METOPROLOL SUCCINATE [Concomitant]
     Dosage: 50MG
     Route: 048
  57. GLUCOSAMINE [Concomitant]
  58. FRAGMIN [Concomitant]
     Indication: THROMBOSIS PROPHYLAXIS
     Route: 058
     Dates: start: 20060421, end: 20060428
  59. OXYCODONE HCL [Concomitant]
     Indication: PAIN
     Route: 048
     Dates: start: 20060421
  60. COLACE [Concomitant]
     Route: 048
     Dates: start: 20060421
  61. PEPCID [Concomitant]
     Dates: start: 20060421
  62. ORTHOVISC INJECTION [Concomitant]
     Indication: PAIN
     Dates: start: 20070116
  63. SYNVISC [Concomitant]
     Indication: ARTHRALGIA
  64. LORAZEPAM [Concomitant]
  65. GABAPENTIN [Concomitant]
  66. HUMALOG [Concomitant]
     Dates: start: 20070425
  67. VYTORIN [Concomitant]
     Indication: BLOOD CHOLESTEROL
  68. WELLBUTRIN SR [Concomitant]
  69. PAXIL [Concomitant]
     Indication: ANXIETY
     Route: 048
     Dates: start: 20010801
  70. METFORMIN [Concomitant]
     Indication: TYPE 2 DIABETES MELLITUS
  71. ACCUPRIL [Concomitant]
     Indication: BLOOD PRESSURE
     Dates: start: 20020901
  72. DESYREL [Concomitant]
     Route: 048
     Dates: start: 20020311
  73. BIAXIN [Concomitant]
     Dates: start: 19981201
  74. ROBITUSSIN [Concomitant]
     Dates: start: 19981201
  75. CELEBREX [Concomitant]
     Dates: start: 19990401

REACTIONS (20)
  - ANXIETY [None]
  - ATTENTION DEFICIT/HYPERACTIVITY DISORDER [None]
  - BLOOD CHOLESTEROL INCREASED [None]
  - CONVULSION [None]
  - DEPRESSION [None]
  - EMOTIONAL DISTRESS [None]
  - FALL [None]
  - FEAR [None]
  - HYPERPHAGIA [None]
  - HYPERTENSION [None]
  - IMPULSE-CONTROL DISORDER [None]
  - INJURY [None]
  - LOSS OF CONSCIOUSNESS [None]
  - MEMORY IMPAIRMENT [None]
  - OBSESSIVE-COMPULSIVE DISORDER [None]
  - PANIC DISORDER [None]
  - PATHOLOGICAL GAMBLING [None]
  - SUICIDAL IDEATION [None]
  - TYPE 2 DIABETES MELLITUS [None]
  - WEIGHT INCREASED [None]
